FAERS Safety Report 22096209 (Version 2)
Quarter: 2023Q2

REPORT INFORMATION
  Report Type: Spontaneous
  Country: CA (occurrence: CA)
  Receive Date: 20230315
  Receipt Date: 20230427
  Transmission Date: 20230721
  Serious: Yes (Hospitalization)
  Sender: FDA-Public Use
  Company Number: CA-JNJFOC-20230320135

PATIENT
  Sex: Female

DRUGS (1)
  1. PREZCOBIX [Suspect]
     Active Substance: COBICISTAT\DARUNAVIR ETHANOLATE
     Indication: HIV infection
     Dosage: 800.00 MG / 150.00 MG
     Route: 048
     Dates: start: 202301

REACTIONS (3)
  - Gastrointestinal disorder [Unknown]
  - Dysphagia [Unknown]
  - Off label use [Unknown]
